FAERS Safety Report 6150332-4 (Version None)
Quarter: 2009Q2

REPORT INFORMATION
  Report Type: 
  Country: None (occurrence: None)
  Receive Date: 20090408
  Receipt Date: 20090408
  Transmission Date: 20091009
  Serious: Yes (Hospitalization)
  Sender: FDA-Public Use
  Company Number: None

PATIENT
  Sex: Male
  Weight: 99.9 kg

DRUGS (2)
  1. CISPLATIN [Suspect]
     Dosage: 55 MG
     Dates: end: 20090317
  2. TAXOL [Suspect]
     Dosage: 110 MG
     Dates: end: 20090317

REACTIONS (7)
  - ASTHENIA [None]
  - CHILLS [None]
  - DIZZINESS [None]
  - MALAISE [None]
  - NAUSEA [None]
  - PNEUMONIA [None]
  - SEPSIS [None]
